FAERS Safety Report 8030510-X (Version None)
Quarter: 2012Q1

REPORT INFORMATION
  Report Type: 
  Country: None (occurrence: None)
  Receive Date: 20120105
  Receipt Date: 20111221
  Transmission Date: 20120608
  Serious: No
  Sender: FDA-Public Use
  Company Number: TCI2011A06648

PATIENT
  Age: 53 Year
  Sex: Male

DRUGS (4)
  1. HERBAL PREPARATION [Suspect]
     Dosage: ORAL
     Route: 048
  2. URINORM (BENZBROMARONE) [Suspect]
     Dosage: ORAL
     Route: 048
  3. ALPRAZOLAM [Suspect]
     Dosage: ORAL
     Route: 048
  4. ROZEREM [Suspect]
     Dosage: ORAL

REACTIONS (1)
  - CONVULSION [None]
